FAERS Safety Report 24234776 (Version 1)
Quarter: 2024Q3

REPORT INFORMATION
  Report Type: Spontaneous
  Country: US (occurrence: None)
  Receive Date: 20240820
  Receipt Date: 20240820
  Transmission Date: 20241016
  Serious: No
  Sender: Public
  Company Number: None

PATIENT
  Age: 75 Year
  Sex: Female

DRUGS (1)
  1. CAPSAICIN [Suspect]
     Active Substance: CAPSAICIN
     Indication: Arthralgia
     Dosage: 1 PATCH AS NEEDED TOPICAL
     Route: 061
     Dates: start: 20240820, end: 20240820

REACTIONS (4)
  - Application site erythema [None]
  - Skin warm [None]
  - Skin discomfort [None]
  - Product adhesion issue [None]

NARRATIVE: CASE EVENT DATE: 20240820
